FAERS Safety Report 6765556-2 (Version None)
Quarter: 2010Q2

REPORT INFORMATION
  Report Type: 
  Country: None (occurrence: None)
  Receive Date: 20100611
  Receipt Date: 20100531
  Transmission Date: 20101027
  Serious: Yes (Other)
  Sender: FDA-Public Use
  Company Number: PHHY2010CA35562

PATIENT
  Sex: Male

DRUGS (1)
  1. EXJADE [Suspect]
     Indication: APLASIA PURE RED CELL
     Dosage: 2000 MG/DAY
     Route: 048
     Dates: start: 20100304, end: 20100517

REACTIONS (2)
  - RASH [None]
  - SWELLING FACE [None]
